FAERS Safety Report 4655419-0 (Version None)
Quarter: 2005Q2

REPORT INFORMATION
  Report Type: 
  Country: None (occurrence: None)
  Receive Date: 20050505
  Receipt Date: 20050419
  Transmission Date: 20051028
  Serious: Yes (Other)
  Sender: FDA-Public Use
  Company Number: USA050392222

PATIENT
  Age: 7 Year
  Sex: Male

DRUGS (1)
  1. HUMATROPE [Suspect]
     Indication: BODY HEIGHT BELOW NORMAL
     Dosage: 1 MG/1 DAY
     Dates: start: 20050107, end: 20050201

REACTIONS (1)
  - CARDIAC MURMUR [None]
